FAERS Safety Report 24328499 (Version 1)
Quarter: 2024Q3

REPORT INFORMATION
  Report Type: Spontaneous
  Country: US (occurrence: US)
  Receive Date: 20240917
  Receipt Date: 20240917
  Transmission Date: 20241017
  Serious: Yes (Hospitalization)
  Sender: VIIV
  Company Number: US-ViiV Healthcare Limited-115956

PATIENT

DRUGS (1)
  1. ZIAGEN [Suspect]
     Active Substance: ABACAVIR SULFATE
     Indication: HIV infection
     Dosage: UNK
     Dates: start: 2006

REACTIONS (6)
  - Skin burning sensation [Recovered/Resolved]
  - Hypotension [Recovered/Resolved]
  - Gait inability [Recovered/Resolved]
  - Alopecia [Recovered/Resolved]
  - Mental disorder [Recovered/Resolved]
  - Tooth disorder [Not Recovered/Not Resolved]
